FAERS Safety Report 7493466-4 (Version None)
Quarter: 2011Q2

REPORT INFORMATION
  Report Type: 
  Country: None (occurrence: None)
  Receive Date: 20110520
  Receipt Date: 20100909
  Transmission Date: 20111010
  Serious: Yes (Hospitalization, Other)
  Sender: FDA-Public Use
  Company Number: US-BAYER-200938155NA

PATIENT
  Age: 31 Year
  Sex: Female
  Weight: 99.773 kg

DRUGS (4)
  1. RHINOCORT [Concomitant]
     Indication: MULTIPLE ALLERGIES
     Dosage: UNK UNK, BID
  2. DROSPIRENONE AND ETHINYL ESTRADIOL [Suspect]
     Dosage: UNK
     Dates: start: 20081201, end: 20090601
  3. YASMIN [Suspect]
     Indication: CONTRACEPTION
     Dates: start: 20060701, end: 20080601
  4. ASTELIN [Concomitant]
     Indication: MULTIPLE ALLERGIES
     Dosage: UNK UNK, BID

REACTIONS (10)
  - ABDOMINAL PAIN [None]
  - CHOLECYSTITIS [None]
  - CHEST PAIN [None]
  - CHOLELITHIASIS [None]
  - HEPATOMEGALY [None]
  - NAUSEA [None]
  - GALLBLADDER DISORDER [None]
  - VOMITING [None]
  - CHOLESTEROSIS [None]
  - PAIN [None]
